FAERS Safety Report 17980542 (Version 1)
Quarter: 2020Q3

REPORT INFORMATION
  Report Type: Report from Study
  Country: ZA (occurrence: ZA)
  Receive Date: 20200704
  Receipt Date: 20200704
  Transmission Date: 20201103
  Serious: Yes (Other)
  Sender: FDA-Public Use
  Company Number: ZA-ROCHE-1738020

PATIENT
  Sex: Male

DRUGS (12)
  1. LUCENTIS [Suspect]
     Active Substance: RANIBIZUMAB
     Dosage: UNK
     Route: 031
     Dates: start: 20160601
  2. LUCENTIS [Suspect]
     Active Substance: RANIBIZUMAB
     Indication: AGE-RELATED MACULAR DEGENERATION
     Dosage: 0.05 ML, UNK
     Route: 031
     Dates: start: 20160115
  3. LUCENTIS [Suspect]
     Active Substance: RANIBIZUMAB
     Dosage: OPHTHALMIC
     Route: 031
     Dates: start: 201612
  4. LUCENTIS [Suspect]
     Active Substance: RANIBIZUMAB
     Dosage: OPHTHALMIC
     Route: 031
     Dates: start: 201612
  5. LUCENTIS [Suspect]
     Active Substance: RANIBIZUMAB
     Dosage: UNK
     Route: 031
     Dates: start: 20160826
  6. LUCENTIS [Suspect]
     Active Substance: RANIBIZUMAB
     Indication: DIABETIC RETINAL OEDEMA
     Dosage: UNK
     Route: 031
     Dates: start: 20160322
  7. LUCENTIS [Suspect]
     Active Substance: RANIBIZUMAB
     Dosage: 0.05 ML, UNK, INTRAOCULAR
     Route: 031
     Dates: start: 20190704, end: 20190704
  8. LUCENTIS [Suspect]
     Active Substance: RANIBIZUMAB
     Indication: MACULAR DEGENERATION
     Dosage: 0.05 ML, UNK
     Route: 031
     Dates: start: 20151211
  9. LUCENTIS [Suspect]
     Active Substance: RANIBIZUMAB
     Dosage: UNK
     Route: 031
     Dates: start: 20160504
  10. LUCENTIS [Suspect]
     Active Substance: RANIBIZUMAB
     Dosage: UNK
     Route: 031
     Dates: start: 20190704
  11. LUCENTIS [Suspect]
     Active Substance: RANIBIZUMAB
     Indication: DIABETIC RETINOPATHY
     Dosage: UNK
     Route: 031
     Dates: start: 20160210
  12. LUCENTIS [Suspect]
     Active Substance: RANIBIZUMAB
     Dosage: UNK
     Route: 031
     Dates: start: 201511

REACTIONS (5)
  - Macular degeneration [Unknown]
  - Visual acuity reduced [Unknown]
  - Retinal thickening [Not Recovered/Not Resolved]
  - Inappropriate schedule of product administration [Unknown]
  - Subretinal fluid [Unknown]
